FAERS Safety Report 24526893 (Version 2)
Quarter: 2025Q1

REPORT INFORMATION
  Report Type: Report from Study
  Country: SE (occurrence: SE)
  Receive Date: 20241021
  Receipt Date: 20250213
  Transmission Date: 20250408
  Serious: Yes (Hospitalization, Other)
  Sender: AUROBINDO
  Company Number: SE-SANDOZ-SDZ2024SE085014

PATIENT

DRUGS (6)
  1. LAMOTRIGINE [Suspect]
     Active Substance: LAMOTRIGINE
     Indication: Mental disorder
     Route: 063
  2. LAMOTRIGINE [Suspect]
     Active Substance: LAMOTRIGINE
     Indication: Epilepsy
     Route: 065
  3. LAMOTRIGINE [Suspect]
     Active Substance: LAMOTRIGINE
     Route: 065
  4. LAMOTRIGINE [Suspect]
     Active Substance: LAMOTRIGINE
     Route: 063
  5. LAMOTRIGINE [Suspect]
     Active Substance: LAMOTRIGINE
     Route: 063
  6. LAMOTRIGINE [Suspect]
     Active Substance: LAMOTRIGINE
     Route: 063

REACTIONS (6)
  - Hypotonia [Recovered/Resolved]
  - Hypotension [Recovered/Resolved]
  - Fatigue [Recovered/Resolved]
  - Drug level increased [Recovering/Resolving]
  - Growth retardation [Recovering/Resolving]
  - Exposure via breast milk [Recovering/Resolving]
